FAERS Safety Report 14593332 (Version 1)
Quarter: 2018Q1

REPORT INFORMATION
  Report Type: Spontaneous
  Country: IT (occurrence: IT)
  Receive Date: 20180302
  Receipt Date: 20180302
  Transmission Date: 20180509
  Serious: Yes (Other)
  Sender: FDA-Public Use
  Company Number: IT-BAYER-2018-040730

PATIENT
  Age: 42 Year
  Sex: Male

DRUGS (3)
  1. ZOLEDRONIC ACID [Concomitant]
     Active Substance: ZOLEDRONIC ACID
     Indication: METASTASES TO BONE
     Dosage: 4 MG, Q4WK
  2. SORAFENIB (RAF KINASE INHIBITOR) [Suspect]
     Active Substance: SORAFENIB
     Indication: METASTASES TO BONE
     Dosage: 200 MG, BID
     Dates: start: 201207
  3. SORAFENIB (RAF KINASE INHIBITOR) [Suspect]
     Active Substance: SORAFENIB
     Indication: PAPILLARY THYROID CANCER
     Dosage: 400 MG, BID
     Dates: start: 201203

REACTIONS (7)
  - Alopecia [None]
  - Diarrhoea [None]
  - Mucosal inflammation [None]
  - Back pain [None]
  - Metastases to spine [None]
  - Metastases to bone [None]
  - Palmar-plantar erythrodysaesthesia syndrome [None]
